FAERS Safety Report 26047612 (Version 1)
Quarter: 2025Q4

REPORT INFORMATION
  Report Type: Spontaneous
  Country: US (occurrence: None)
  Receive Date: 20251114
  Receipt Date: 20251114
  Transmission Date: 20260117
  Serious: Yes (Hospitalization)
  Sender: FDA-CTU
  Company Number: None

PATIENT
  Age: 16 Year
  Sex: Male
  Weight: 63 kg

DRUGS (3)
  1. CATAPRES [Suspect]
     Active Substance: CLONIDINE HYDROCHLORIDE
     Indication: Sleep disorder
     Dosage: OTHER QUANTITY : 1 DROP(S);?FREQUENCY : AT BEDTIME;?
     Route: 048
     Dates: start: 20251011, end: 20251013
  2. CLONIDINE [Concomitant]
     Active Substance: CLONIDINE
  3. ZYRTEC [Concomitant]
     Active Substance: CETIRIZINE HYDROCHLORIDE

REACTIONS (11)
  - Lethargy [None]
  - Hypersomnia [None]
  - Catatonia [None]
  - Asthenopia [None]
  - Sedation [None]
  - Hypophagia [None]
  - Mental status changes [None]
  - Circulatory collapse [None]
  - Therapy cessation [None]
  - Product compounding quality issue [None]
  - Product preparation issue [None]

NARRATIVE: CASE EVENT DATE: 20251012
